FAERS Safety Report 6824683-1 (Version None)
Quarter: 2010Q3

REPORT INFORMATION
  Report Type: 
  Country: None (occurrence: None)
  Receive Date: 20100708
  Receipt Date: 20061107
  Transmission Date: 20110219
  Serious: No
  Sender: FDA-Public Use
  Company Number: US-PFIZER INC-2006138859

PATIENT
  Sex: Female
  Weight: 72.57 kg

DRUGS (8)
  1. CHANTIX [Suspect]
     Indication: EX-TOBACCO USER
     Route: 048
     Dates: start: 20061001
  2. LIPITOR [Concomitant]
  3. LISINOPRIL [Concomitant]
  4. ZYRTEC [Concomitant]
  5. DICLOFENAC SODIUM [Concomitant]
  6. PREMPRO [Concomitant]
  7. NEXIUM [Concomitant]
  8. ZETIA [Concomitant]

REACTIONS (1)
  - NAUSEA [None]
